FAERS Safety Report 5918055-1 (Version None)
Quarter: 2008Q4

REPORT INFORMATION
  Report Type: 
  Country: None (occurrence: None)
  Receive Date: 20081009
  Receipt Date: 20080909
  Transmission Date: 20090506
  Serious: Yes (Other)
  Sender: FDA-Public Use
  Company Number: 2008S1016394

PATIENT
  Age: 40 Year
  Sex: Male
  Weight: 70 kg

DRUGS (9)
  1. AMLODIPINE [Suspect]
     Indication: HYPERTENSION
     Dosage: 10 MG
  2. LOSARTAN POTASSIUM [Suspect]
     Indication: HYPERTENSION
     Dosage: 25 MG
  3. METHYLDOPA [Suspect]
     Indication: HYPERTENSION
     Dosage: 1000 MG
  4. DOXAZOSIN (DOXAZOSIN) [Suspect]
     Indication: HYPERTENSION
     Dosage: 8 MG
  5. BISOPROLOL FUMARATE [Suspect]
     Indication: HYPERTENSION
     Dosage: 3.5 MG
  6. TACROLIMUS [Concomitant]
  7. MYCOPHENOLATE MOFETIL [Concomitant]
  8. METHYLPREDNISOLONE 16MG TAB [Concomitant]
  9. BASILIXIMAB [Concomitant]

REACTIONS (4)
  - BLOOD PRESSURE SYSTOLIC DECREASED [None]
  - GLOMERULAR VASCULAR DISORDER [None]
  - HYPOPERFUSION [None]
  - KIDNEY TRANSPLANT REJECTION [None]
